FAERS Safety Report 5893080-8 (Version None)
Quarter: 2008Q3

REPORT INFORMATION
  Report Type: 
  Country: None (occurrence: None)
  Receive Date: 20080923
  Receipt Date: 20080327
  Transmission Date: 20090109
  Serious: No
  Sender: FDA-Public Use
  Company Number: US-ASTRAZENECA-2006UW03400

PATIENT
  Age: 55 Year
  Sex: Female
  Weight: 106.6 kg

DRUGS (4)
  1. SEROQUEL [Suspect]
     Indication: BIPOLAR DISORDER
     Route: 048
  2. INDERAL [Concomitant]
  3. TEGRETOL [Concomitant]
  4. METFORMIN HCL [Concomitant]
     Dates: start: 20071201

REACTIONS (5)
  - HYPOGLYCAEMIA [None]
  - INCREASED APPETITE [None]
  - NIGHT SWEATS [None]
  - WEIGHT DECREASED [None]
  - WEIGHT INCREASED [None]
